FAERS Safety Report 6181556-8 (Version None)
Quarter: 2009Q2

REPORT INFORMATION
  Report Type: 
  Country: None (occurrence: None)
  Receive Date: 20090506
  Receipt Date: 20090427
  Transmission Date: 20091009
  Serious: Yes (Other)
  Sender: FDA-Public Use
  Company Number: B0571160A

PATIENT
  Sex: Female

DRUGS (3)
  1. NIQUITIN 21MG [Suspect]
     Dosage: 1PAT PER DAY
     Route: 062
     Dates: start: 20031101, end: 20031101
  2. NIQUITIN 7MG [Suspect]
     Dosage: 1PAT PER DAY
     Route: 062
     Dates: start: 20030201
  3. NIQUITIN 14MG [Suspect]
     Dosage: 1PAT PER DAY
     Route: 062
     Dates: start: 20030101

REACTIONS (4)
  - EMOTIONAL DISTRESS [None]
  - LOCAL SWELLING [None]
  - PRURITUS [None]
  - SKIN ATROPHY [None]
